FAERS Safety Report 23989612 (Version 1)
Quarter: 2024Q2

REPORT INFORMATION
  Report Type: Spontaneous
  Country: US (occurrence: US)
  Receive Date: 20240619
  Receipt Date: 20240619
  Transmission Date: 20240716
  Serious: No
  Sender: FDA-Public Use
  Company Number: US-AMGEN-USASP2024116033

PATIENT
  Age: 8 Year
  Sex: Female

DRUGS (26)
  1. RITUXIMAB [Suspect]
     Active Substance: RITUXIMAB
     Indication: New onset refractory status epilepticus
     Dosage: UNK (FIRST HIGH-DOSE)
     Route: 065
  2. RITUXIMAB [Suspect]
     Active Substance: RITUXIMAB
     Dosage: UNK (SECOND HIGH-DOSE)
     Route: 065
  3. PROPOFOL [Concomitant]
     Active Substance: PROPOFOL
     Indication: New onset refractory status epilepticus
     Dosage: 80 MILLIGRAM/KILOGRAM, QH
  4. PROPOFOL [Concomitant]
     Active Substance: PROPOFOL
     Dosage: 80 MILLIGRAM/KILOGRAM, QH
  5. PROPOFOL [Concomitant]
     Active Substance: PROPOFOL
     Dosage: 80 MILLIGRAM/KILOGRAM, QH
  6. PROPOFOL [Concomitant]
     Active Substance: PROPOFOL
     Dosage: 80 MILLIGRAM/KILOGRAM, QH
  7. PROPOFOL [Concomitant]
     Active Substance: PROPOFOL
     Dosage: 80 MILLIGRAM/KILOGRAM, QH
  8. PROPOFOL [Concomitant]
     Active Substance: PROPOFOL
     Dosage: 30 MILLIGRAM/KILOGRAM, QH
  9. KETAMINE [Concomitant]
     Active Substance: KETAMINE
     Indication: Sedative therapy
  10. FENTANYL [Concomitant]
     Active Substance: FENTANYL\FENTANYL CITRATE
     Indication: Sedative therapy
  11. ROCURONIUM [Concomitant]
     Active Substance: ROCURONIUM BROMIDE
     Indication: Sedative therapy
  12. FLUMAZENIL [Concomitant]
     Active Substance: FLUMAZENIL
  13. MIDAZOLAM [Concomitant]
     Active Substance: MIDAZOLAM
     Indication: New onset refractory status epilepticus
     Dosage: 0.4 MILLIGRAM/KILOGRAM, QH
  14. MIDAZOLAM [Concomitant]
     Active Substance: MIDAZOLAM
     Dosage: 0.35 MILLIGRAM/KILOGRAM, QH
  15. MIDAZOLAM [Concomitant]
     Active Substance: MIDAZOLAM
     Dosage: 0.4 MILLIGRAM/KILOGRAM, QH
  16. MIDAZOLAM [Concomitant]
     Active Substance: MIDAZOLAM
     Dosage: 0.2 MILLIGRAM/KILOGRAM, QH
  17. MIDAZOLAM [Concomitant]
     Active Substance: MIDAZOLAM
     Dosage: 0.2 MILLIGRAM/KILOGRAM, QH
  18. MIDAZOLAM [Concomitant]
     Active Substance: MIDAZOLAM
     Dosage: 0.2 MILLIGRAM/KILOGRAM, QH
  19. MIDAZOLAM [Concomitant]
     Active Substance: MIDAZOLAM
     Dosage: 0.2 MILLIGRAM/KILOGRAM, QH
  20. PHENOBARBITAL [Concomitant]
     Active Substance: PHENOBARBITAL
     Indication: New onset refractory status epilepticus
     Dosage: UNK
  21. PHENOBARBITAL [Concomitant]
     Active Substance: PHENOBARBITAL
     Dosage: UNK (MAXIMIZED TO SUPRA-THERAPEUTIC LEVELS)
  22. PHENOBARBITAL [Concomitant]
     Active Substance: PHENOBARBITAL
     Dosage: 2 MILLIGRAM/KILOGRAM, QH
  23. PHENOBARBITAL [Concomitant]
     Active Substance: PHENOBARBITAL
     Dosage: 1 MILLIGRAM/KILOGRAM, QH
  24. PHENOBARBITAL [Concomitant]
     Active Substance: PHENOBARBITAL
     Dosage: UNK (DOSE INCREASED)
  25. CLOBAZAM [Concomitant]
     Active Substance: CLOBAZAM
     Indication: New onset refractory status epilepticus
     Dosage: UNK
     Route: 048
  26. CANNABIDIOL [Concomitant]
     Active Substance: CANNABIDIOL
     Indication: New onset refractory status epilepticus
     Dosage: UNK

REACTIONS (6)
  - Drug effective for unapproved indication [Unknown]
  - Off label use [Unknown]
  - Disinhibition [Not Recovered/Not Resolved]
  - Irritability [Not Recovered/Not Resolved]
  - Affective disorder [Not Recovered/Not Resolved]
  - Defiant behaviour [Not Recovered/Not Resolved]
